FAERS Safety Report 4368651-0 (Version None)
Quarter: 2004Q2

REPORT INFORMATION
  Report Type: 
  Country: None (occurrence: None)
  Receive Date: 20040528
  Receipt Date: 20040506
  Transmission Date: 20050107
  Serious: Yes (Hospitalization)
  Sender: FDA-Public Use
  Company Number: DE-JNJFOC-20040401494

PATIENT
  Age: 45 Year
  Sex: Male

DRUGS (1)
  1. RISPERDAL COSNTA (RISPERIDONE) MICROSPHERES [Suspect]
     Indication: DRUG USE FOR UNKNOWN INDICATION
     Dosage: 37.5 MG, 1 IN 2 WEEK, INTRA-MUSCULAR
     Route: 030
     Dates: start: 20031001

REACTIONS (1)
  - INFLAMMATION [None]
